FAERS Safety Report 5988692-7 (Version None)
Quarter: 2008Q4

REPORT INFORMATION
  Report Type: 
  Country: None (occurrence: None)
  Receive Date: 20081210
  Receipt Date: 20081127
  Transmission Date: 20090506
  Serious: Yes (Hospitalization)
  Sender: FDA-Public Use
  Company Number: PHBS2008JP05960

PATIENT
  Age: 75 Year
  Sex: Male

DRUGS (6)
  1. NEORAL [Suspect]
     Indication: HENOCH-SCHONLEIN PURPURA
     Dosage: 50 MG/DAY
  2. NEORAL [Suspect]
     Dosage: 75 MG/DAY
  3. PREDNISOLONE [Suspect]
     Indication: HENOCH-SCHONLEIN PURPURA
     Dosage: 30 MG/DAY
     Route: 048
  4. PREDNISOLONE [Suspect]
     Dosage: 25 MG/DAY
     Route: 048
  5. METHYLPREDNISOLONE 16MG TAB [Suspect]
     Indication: HENOCH-SCHONLEIN PURPURA
     Dosage: 500 MG/DAY
     Dates: start: 20061101
  6. SULFAMETHOXAZOLE AND TRIMETHOPRIM [Suspect]

REACTIONS (12)
  - ABDOMINAL PAIN [None]
  - ABDOMINAL RIGIDITY [None]
  - CHOLECYSTECTOMY [None]
  - DYSPNOEA EXERTIONAL [None]
  - EFFUSION [None]
  - GALLBLADDER NECROSIS [None]
  - GALLBLADDER PERFORATION [None]
  - GRANULOMA [None]
  - HAEMOBILIA [None]
  - PERITONEAL LAVAGE [None]
  - PERITONITIS [None]
  - PNEUMOCYSTIS JIROVECI PNEUMONIA [None]
